FAERS Safety Report 18606730 (Version 2)
Quarter: 2020Q4

REPORT INFORMATION
  Report Type: Report from Study
  Country: FR (occurrence: FR)
  Receive Date: 20201211
  Receipt Date: 20201216
  Transmission Date: 20210114
  Serious: Yes (Death)
  Sender: FDA-Public Use
  Company Number: FR-PFIZER INC-2020489349

PATIENT
  Sex: Male

DRUGS (5)
  1. CISPLATIN. [Suspect]
     Active Substance: CISPLATIN
     Indication: GERM CELL CANCER METASTATIC
     Dosage: 20 MG/M2, DAY 1-5 EVERY 3 WEEKS (DAY 1-5)
  2. LENOGRASTIM [Suspect]
     Active Substance: LENOGRASTIM
     Indication: GERM CELL CANCER METASTATIC
     Dosage: 263 UG/DAY DAY 7-15, EVERY 3 WEEKS
  3. GEMCITABINE HYDROCHLORIDE. [Suspect]
     Active Substance: GEMCITABINE HYDROCHLORIDE
     Indication: GERM CELL CANCER METASTATIC
     Dosage: 1000 MG/M2,  DAY 1 AND 5 EVERY 3 WEEKS (DAY 1 AND 5)
  4. IFOSFAMIDE. [Suspect]
     Active Substance: IFOSFAMIDE
     Indication: GERM CELL CANCER METASTATIC
     Dosage: 1200 MG/M2, DAY 1-5 EVERY 3 WEEKS (DAY 1-5)
  5. MESNA. [Concomitant]
     Active Substance: MESNA
     Dosage: 500 MG/M2, AT H0, H3, H7, AND H11 ON EACH DAY OF IFOSFAMIDE THERAPY
     Route: 042

REACTIONS (1)
  - Death [Fatal]
